FAERS Safety Report 7237861-7 (Version None)
Quarter: 2011Q1

REPORT INFORMATION
  Report Type: 
  Country: None (occurrence: None)
  Receive Date: 20110121
  Receipt Date: 20110113
  Transmission Date: 20110831
  Serious: No
  Sender: FDA-Public Use
  Company Number: US-B.I. PHARMACEUTICALS,INC./RIDGEFIELD-2010-BP-14321BP

PATIENT
  Sex: Male

DRUGS (10)
  1. OXYBUTYNIN [Concomitant]
     Indication: BLADDER DISORDER
     Dosage: 10 MG
     Dates: start: 20020101
  2. MULTAQ [Concomitant]
     Indication: ATRIAL FIBRILLATION
     Dosage: 800 MG
     Route: 048
  3. PLAVIX [Concomitant]
     Indication: ANTICOAGULANT THERAPY
     Dosage: 75 MG
     Route: 048
  4. PRADAXA [Suspect]
     Indication: ATRIAL FIBRILLATION
     Dosage: 300 MG
     Route: 048
     Dates: start: 20101122
  5. EZETIMIBE/SIMVASTATIN [Concomitant]
     Indication: PROPHYLAXIS
  6. NIACIN [Concomitant]
     Indication: PROPHYLAXIS
     Dosage: 1000 MG
     Route: 048
     Dates: start: 20080101
  7. OMEPRAZOLE [Concomitant]
     Dosage: 4 MG
  8. ATENOLOL [Concomitant]
     Indication: HYPERTENSION
     Dosage: 125 MG
     Route: 048
  9. LISINOPRIL AND HYDROCHLOROTHIAZIDE [Concomitant]
     Indication: HYPERTENSION
     Route: 048
     Dates: start: 20101001
  10. PROSCAR [Concomitant]
     Indication: PROPHYLAXIS
     Dosage: 5 MG
     Route: 048

REACTIONS (2)
  - PARAESTHESIA [None]
  - DIARRHOEA [None]
